FAERS Safety Report 9487161 (Version 2)
Quarter: 2014Q1

REPORT INFORMATION
  Report Type: Spontaneous
  Country: IT (occurrence: IT)
  Receive Date: 20130829
  Receipt Date: 20140113
  Transmission Date: 20141002
  Serious: Yes (Hospitalization)
  Sender: FDA-Public Use
  Company Number: IT-BRISTOL-MYERS SQUIBB COMPANY-19222769

PATIENT
  Age: 77 Year
  Sex: Female

DRUGS (4)
  1. COUMADIN TABS 5 MG [Suspect]
     Indication: ISCHAEMIC STROKE
     Route: 048
     Dates: start: 20080101, end: 20130613
  2. SINVACOR [Concomitant]
     Indication: HYPERCHOLESTEROLAEMIA
     Route: 048
     Dates: end: 20130613
  3. TAVOR [Concomitant]
     Route: 048
     Dates: start: 20130613
  4. MOVICOL [Concomitant]
     Dosage: 1DF: 1 UNIT
     Route: 048
     Dates: start: 20130613

REACTIONS (3)
  - Rectal haemorrhage [Recovered/Resolved]
  - International normalised ratio increased [Recovered/Resolved]
  - Medication error [Unknown]
